FAERS Safety Report 5293674-7 (Version None)
Quarter: 2007Q2

REPORT INFORMATION
  Report Type: 
  Country: None (occurrence: None)
  Receive Date: 20070411
  Receipt Date: 20070329
  Transmission Date: 20071010
  Serious: Yes (Other)
  Sender: FDA-Public Use
  Company Number: US-SHR-US-2006-037765

PATIENT
  Age: 32 Year
  Sex: Male
  Weight: 93 kg

DRUGS (6)
  1. BETASERON [Suspect]
     Indication: RELAPSING-REMITTING MULTIPLE SCLEROSIS
     Dosage: 8 MIU, EVERY 2D AT NIGHTTIME
     Route: 058
     Dates: start: 20050315, end: 20061227
  2. CHANTIX [Concomitant]
  3. TYLENOL [Concomitant]
  4. CALCIUM [Concomitant]
  5. VITAMIN B [Concomitant]
  6. CORTICOSTEROIDS [Concomitant]
     Dates: start: 20050201, end: 20061201

REACTIONS (5)
  - ANAEMIA [None]
  - PROCEDURAL PAIN [None]
  - RADIATION MUCOSITIS [None]
  - TONSIL CANCER [None]
  - WEIGHT DECREASED [None]
